FAERS Safety Report 5962798-0 (Version None)
Quarter: 2008Q4

REPORT INFORMATION
  Report Type: 
  Country: None (occurrence: None)
  Receive Date: 20081120
  Receipt Date: 20081105
  Transmission Date: 20090506
  Serious: Yes (Other)
  Sender: FDA-Public Use
  Company Number: DSU-2008-01893

PATIENT
  Age: 72 Year
  Weight: 66.6788 kg

DRUGS (2)
  1. AZOR [Suspect]
     Indication: HYPERTENSION
     Dosage: PER ORAL
     Route: 048
     Dates: start: 20080801
  2. ATENOLOL [Concomitant]

REACTIONS (2)
  - NOCTURIA [None]
  - WEIGHT DECREASED [None]
